FAERS Safety Report 17946525 (Version 1)
Quarter: 2020Q2

REPORT INFORMATION
  Report Type: Spontaneous
  Country: FR (occurrence: FR)
  Receive Date: 20200626
  Receipt Date: 20200626
  Transmission Date: 20200714
  Serious: Yes (Hospitalization, Other)
  Sender: FDA-Public Use
  Company Number: FR-AUROBINDO-AUR-APL-2020-030881

PATIENT
  Age: 49 Year
  Sex: Male
  Weight: 70 kg

DRUGS (16)
  1. ROVAMYCINE [Suspect]
     Active Substance: SPIRAMYCIN
     Indication: INFECTION
     Dosage: 3 DOSAGE FORM, ONCE A DAY
     Route: 041
     Dates: start: 20190430, end: 20190506
  2. VANCOMYCIN [Suspect]
     Active Substance: VANCOMYCIN
     Indication: INFECTION
     Dosage: 2500 MILLIGRAM, ONCE A DAY
     Route: 041
     Dates: start: 20190425, end: 20190510
  3. METHOTREXATE. [Suspect]
     Active Substance: METHOTREXATE
     Indication: ACUTE MYELOID LEUKAEMIA
     Dosage: 15 MILLIGRAM, CYCLICAL
     Route: 037
     Dates: start: 20190425, end: 20190503
  4. CYTARABINE. [Suspect]
     Active Substance: CYTARABINE
     Indication: ACUTE MYELOID LEUKAEMIA
     Dosage: 2520 MILLIGRAM, CYCLICAL
     Route: 041
     Dates: start: 20190425, end: 20190501
  5. CEFOTAXIME [Suspect]
     Active Substance: CEFOTAXIME SODIUM
     Indication: INFECTION
     Dosage: 6 GRAM, ONCE A DAY
     Route: 041
     Dates: start: 20190422, end: 20190425
  6. ALLOPURINOL. [Suspect]
     Active Substance: ALLOPURINOL
     Indication: PROPHYLAXIS
     Dosage: 300 MILLIGRAM, ONCE A DAY
     Route: 048
     Dates: start: 20190419, end: 20190502
  7. ALPRAZOLAM. [Suspect]
     Active Substance: ALPRAZOLAM
     Indication: ANXIETY
     Dosage: 0.25 MILLIGRAM, ONCE A DAY
     Route: 048
     Dates: start: 20190423, end: 20190510
  8. HYDREA [Suspect]
     Active Substance: HYDROXYUREA
     Indication: ACUTE MYELOID LEUKAEMIA
     Dosage: 2 GRAM, ONCE A DAY
     Route: 048
     Dates: start: 20190419, end: 20190425
  9. DAUNORUBICIN [Suspect]
     Active Substance: DAUNORUBICIN
     Indication: ACUTE MYELOID LEUKAEMIA
     Dosage: 480 MILLIGRAM, CYCLICAL
     Route: 041
     Dates: start: 20190425, end: 20190427
  10. ACICLOVIR [Suspect]
     Active Substance: ACYCLOVIR
     Indication: INFECTION
     Dosage: 750 MILLIGRAM, ONCE A DAY
     Route: 041
     Dates: start: 20190429, end: 20190519
  11. CYTARABINE. [Suspect]
     Active Substance: CYTARABINE
     Indication: ACUTE MYELOID LEUKAEMIA
     Dosage: 30 MILLIGRAM, CYCLICAL
     Route: 037
     Dates: start: 20190425, end: 20190503
  12. RYDAPT [Suspect]
     Active Substance: MIDOSTAURIN
     Indication: ACUTE MYELOID LEUKAEMIA
     Dosage: 100 MILLIGRAM, ONCE A DAY
     Route: 048
     Dates: start: 20190502, end: 20190505
  13. AMIKACIN. [Suspect]
     Active Substance: AMIKACIN
     Indication: INFECTION
     Dosage: 1 GRAM, ONCE A DAY
     Route: 041
     Dates: start: 20190425, end: 20190427
  14. AMBISOME [Suspect]
     Active Substance: AMPHOTERICIN B
     Indication: INFECTION
     Dosage: 200 MILLIGRAM, ONCE A DAY
     Route: 041
     Dates: start: 20190429, end: 20190520
  15. CEFTAZIDIME. [Suspect]
     Active Substance: CEFTAZIDIME
     Indication: INFECTION
     Dosage: 6 GRAM, ONCE A DAY
     Route: 041
     Dates: start: 20190426, end: 20190513
  16. METHYLPREDNISOLONE. [Suspect]
     Active Substance: METHYLPREDNISOLONE
     Indication: ACUTE MYELOID LEUKAEMIA
     Dosage: 40 MILLIGRAM, CYCLICAL
     Route: 037
     Dates: start: 20190425, end: 20190503

REACTIONS (1)
  - Posterior reversible encephalopathy syndrome [Recovered/Resolved with Sequelae]

NARRATIVE: CASE EVENT DATE: 20190506
